FAERS Safety Report 6264098-0 (Version None)
Quarter: 2009Q3

REPORT INFORMATION
  Report Type: 
  Country: None (occurrence: None)
  Receive Date: 20090710
  Receipt Date: 20090630
  Transmission Date: 20100115
  Serious: Yes (Hospitalization, Other)
  Sender: FDA-Public Use
  Company Number: NZ-ELI_LILLY_AND_COMPANY-NZ200907000287

PATIENT
  Age: 49 Year
  Sex: Female

DRUGS (2)
  1. OLANZAPINE [Suspect]
     Indication: BIPOLAR I DISORDER
     Dosage: 20 MG, AS NEEDED
     Dates: start: 20040101
  2. OLANZAPINE [Suspect]
     Dosage: 20 MG, DAILY (1/D)
     Dates: start: 20050101

REACTIONS (2)
  - HOSPITALISATION [None]
  - TYPE 2 DIABETES MELLITUS [None]
